FAERS Safety Report 11468443 (Version 1)
Quarter: 2015Q3

REPORT INFORMATION
  Report Type: Spontaneous
  Country: US (occurrence: None)
  Receive Date: 20150904
  Receipt Date: 20150904
  Transmission Date: 20151125
  Serious: Yes (Hospitalization)
  Sender: FDA-Public Use
  Company Number: None

PATIENT
  Age: 15 Year
  Sex: Male
  Weight: 89.8 kg

DRUGS (5)
  1. PREDNISONE. [Suspect]
     Active Substance: PREDNISONE
     Dates: end: 20150831
  2. VINCRISTINE SULFATE. [Suspect]
     Active Substance: VINCRISTINE SULFATE
     Dates: end: 20150827
  3. CYTARABINE. [Suspect]
     Active Substance: CYTARABINE
     Dates: end: 20150803
  4. ONCASPAR [Suspect]
     Active Substance: PEGASPARGASE
     Dates: start: 20150808
  5. METHOTREXATE [Suspect]
     Active Substance: METHOTREXATE
     Dates: end: 20150812

REACTIONS (6)
  - Hydronephrosis [None]
  - Dehydration [None]
  - Acute kidney injury [None]
  - Contrast media reaction [None]
  - Nephrolithiasis [None]
  - Urinary tract infection [None]

NARRATIVE: CASE EVENT DATE: 20150831
